FAERS Safety Report 23801858 (Version 1)
Quarter: 2024Q2

REPORT INFORMATION
  Report Type: Spontaneous
  Country: US (occurrence: US)
  Receive Date: 20240501
  Receipt Date: 20240501
  Transmission Date: 20240716
  Serious: Yes (Other)
  Sender: FDA-Public Use
  Company Number: US-BRISTOL-MYERS SQUIBB COMPANY-2024-067260

PATIENT
  Age: 57 Year
  Sex: Male

DRUGS (1)
  1. LENALIDOMIDE [Suspect]
     Active Substance: LENALIDOMIDE
     Indication: Swelling
     Dosage: TAKE 1 CAPSULE BY ?MOUTH DAILY AT AT ?BEDTIME
     Route: 048

REACTIONS (1)
  - Diarrhoea [Recovered/Resolved]
